FAERS Safety Report 7113014-8 (Version None)
Quarter: 2010Q4

REPORT INFORMATION
  Report Type: 
  Country: None (occurrence: None)
  Receive Date: 20101119
  Receipt Date: 20101110
  Transmission Date: 20110411
  Serious: Yes (Death)
  Sender: FDA-Public Use
  Company Number: VE-PFIZER INC-2010140072

PATIENT
  Age: 56 Year
  Sex: Male

DRUGS (5)
  1. LIPITOR [Suspect]
     Indication: HYPERCHOLESTEROLAEMIA
     Dosage: 80 MG, 1X/DAY
     Route: 048
     Dates: end: 20100531
  2. ADALAT [Concomitant]
     Indication: HYPERTENSION
     Dosage: 1 UNK, UNK
     Route: 048
  3. PLAVIX [Concomitant]
     Dosage: 1 UNK, UNK
     Route: 048
  4. DAFLON [Concomitant]
     Dosage: 500 MG, UNK
     Route: 048
  5. VITAMIN E [Concomitant]
     Dosage: 1 UNK, UNK
     Route: 048

REACTIONS (1)
  - MULTI-ORGAN DISORDER [None]
